FAERS Safety Report 24608943 (Version 1)
Quarter: 2024Q4

REPORT INFORMATION
  Report Type: Other
  Country: AM (occurrence: AM)
  Receive Date: 20241112
  Receipt Date: 20241112
  Transmission Date: 20250114
  Serious: Yes (Other)
  Sender: MSN LABORATORIES PRIVATE LIMITED
  Company Number: AM-MSN LABORATORIES PRIVATE LIMITED-2164916

PATIENT

DRUGS (6)
  1. MOXIFLOXACIN HYDROCHLORIDE [Suspect]
     Active Substance: MOXIFLOXACIN HYDROCHLORIDE
     Indication: Tuberculosis
  2. BEDAQUILINE [Suspect]
     Active Substance: BEDAQUILINE
  3. CLOFAZIMINE [Concomitant]
     Active Substance: CLOFAZIMINE
  4. LEVOFLOXACIN [Concomitant]
     Active Substance: LEVOFLOXACIN
  5. LINEZOLID [Suspect]
     Active Substance: LINEZOLID
  6. CYCLOSERINE [Suspect]
     Active Substance: CYCLOSERINE

REACTIONS (1)
  - Lymphoproliferative disorder [Recovered/Resolved]
